FAERS Safety Report 12159718 (Version 1)
Quarter: 2016Q1

REPORT INFORMATION
  Report Type: Other
  Country: AU (occurrence: AU)
  Receive Date: 20160308
  Receipt Date: 20160308
  Transmission Date: 20160526
  Serious: Yes (Hospitalization, Other)
  Sender: FDA-Public Use
  Company Number: AU-PURDUE PHARMA-CAN-2016-0006516

PATIENT
  Age: 70 Year
  Sex: Male

DRUGS (9)
  1. MADOPAR [Concomitant]
     Active Substance: BENSERAZIDE HYDROCHLORIDE\LEVODOPA
     Dosage: 1.5 TABLET, Q4H
     Route: 065
  2. NON-PMN METHYLPHENIDATE HCL [Suspect]
     Active Substance: METHYLPHENIDATE HYDROCHLORIDE
     Indication: PARKINSONIAN GAIT
     Dosage: 10 MG, AM
     Route: 065
  3. ATORVASTATIN [Concomitant]
     Active Substance: ATORVASTATIN
     Indication: MYOCARDIAL ISCHAEMIA
     Dosage: 10 MG, NOCTE
     Route: 065
  4. PRAMIPEXOLE. [Concomitant]
     Active Substance: PRAMIPEXOLE
     Indication: PARKINSON^S DISEASE
     Dosage: 450 MCG, NOCTE
     Route: 065
  5. QUETIAPINE [Concomitant]
     Active Substance: QUETIAPINE
     Indication: PARKINSON^S DISEASE PSYCHOSIS
     Dosage: 25 MG, NOCTE
     Route: 065
  6. PERINDOPRIL [Concomitant]
     Active Substance: PERINDOPRIL
     Indication: ACUTE MYOCARDIAL INFARCTION
     Dosage: 5 MG, AM
     Route: 065
  7. MADOPAR [Concomitant]
     Active Substance: BENSERAZIDE HYDROCHLORIDE\LEVODOPA
     Indication: PARKINSON^S DISEASE
     Dosage: 1 TABLET, Q4H
     Route: 065
  8. AMANTADINE [Concomitant]
     Active Substance: AMANTADINE
     Indication: PARKINSON^S DISEASE
     Dosage: 100 MG, AM
     Route: 065
  9. ATORVASTATIN [Concomitant]
     Active Substance: ATORVASTATIN
     Dosage: 40 MG, NOCTE
     Route: 065

REACTIONS (7)
  - Angina pectoris [Unknown]
  - Off label use [Recovered/Resolved]
  - Arterial stenosis [Recovered/Resolved]
  - Oxygen saturation decreased [Unknown]
  - Acute myocardial infarction [Recovered/Resolved]
  - Hypertension [Unknown]
  - Tachycardia [Unknown]
